FAERS Safety Report 25097876 (Version 1)
Quarter: 2025Q1

REPORT INFORMATION
  Report Type: Spontaneous
  Country: US (occurrence: US)
  Receive Date: 20250320
  Receipt Date: 20250320
  Transmission Date: 20250409
  Serious: Yes (Life-Threatening, Other)
  Sender: ALKEM
  Company Number: US-ALKEM LABORATORIES LIMITED-US-ALKEM-2025-02977

PATIENT

DRUGS (2)
  1. MYCOPHENOLATE MOFETIL [Suspect]
     Active Substance: MYCOPHENOLATE MOFETIL
     Indication: Prophylaxis against graft versus host disease
     Dosage: 15 MILLIGRAM/KILOGRAM, TID (THREE TIMES DAILY) (NOT TO EXCEED 3 GRAMS/DAY) (DAY PLUS 5 THROUGH DAY P
     Route: 048
  2. SIROLIMUS [Suspect]
     Active Substance: SIROLIMUS
     Indication: Prophylaxis against graft versus host disease
     Dosage: 1 MILLIGRAM/SQ. METER, QD (MAXIMUM 2 MILLIGRAM DAILY) (DAY PLUS5 THROUGH DAY PLUS365)
     Route: 065

REACTIONS (4)
  - Small intestinal obstruction [Unknown]
  - Small intestinal haemorrhage [Unknown]
  - Septic shock [Unknown]
  - Sepsis [Unknown]

NARRATIVE: CASE EVENT DATE: 20190827
